FAERS Safety Report 4318915-1 (Version None)
Quarter: 2004Q1

REPORT INFORMATION
  Report Type: 
  Country: None (occurrence: None)
  Receive Date: 20040317
  Receipt Date: 20040317
  Transmission Date: 20041129
  Serious: No
  Sender: FDA-Public Use
  Company Number: None

PATIENT
  Age: 19 Year
  Sex: Male
  Weight: 64 kg

DRUGS (3)
  1. FOSPHENYTOIN SODIUM [Suspect]
     Indication: CONVULSION
     Dosage: 1100 MG IV BOLUS
     Route: 040
     Dates: start: 20031229
  2. MORPHINE [Concomitant]
  3. LORAZEPAM [Concomitant]

REACTIONS (3)
  - HYPOTENSION [None]
  - INJECTION SITE BURNING [None]
  - PRURITUS [None]
